FAERS Safety Report 13115386 (Version 1)
Quarter: 2017Q1

REPORT INFORMATION
  Report Type: Spontaneous
  Country: US (occurrence: US)
  Receive Date: 20170113
  Receipt Date: 20170113
  Transmission Date: 20170428
  Serious: Yes (Death, Other)
  Sender: FDA-Public Use
  Company Number: US-EDGEMONT-2017EDG00001

PATIENT
  Age: 15 Year

DRUGS (1)
  1. BUPROPION. [Suspect]
     Active Substance: BUPROPION
     Route: 048

REACTIONS (3)
  - Drug abuse [Unknown]
  - Drowning [Fatal]
  - Seizure [Fatal]
